FAERS Safety Report 5038480-3 (Version None)
Quarter: 2006Q2

REPORT INFORMATION
  Report Type: 
  Country: None (occurrence: None)
  Receive Date: 20060629
  Receipt Date: 20060621
  Transmission Date: 20061013
  Serious: Yes (Other)
  Sender: FDA-Public Use
  Company Number: PHBS2006BR09493

PATIENT
  Age: 80 Year
  Sex: Male
  Weight: 68 kg

DRUGS (11)
  1. FORASEQ [Suspect]
     Dosage: UNK, BID
  2. FORADIL [Suspect]
  3. SANDIMMUNE [Suspect]
     Indication: RENAL TRANSPLANT
     Dates: start: 20000821
  4. MONOCORDIL [Concomitant]
  5. SECOTEX [Concomitant]
  6. METICORTEN [Concomitant]
  7. HUMALOG [Concomitant]
     Indication: DIABETES MELLITUS
  8. LANTUS [Concomitant]
     Indication: DIABETES MELLITUS
  9. CARDIZEM [Concomitant]
  10. COUMADIN [Concomitant]
  11. COZAAR [Concomitant]
     Dosage: 12.5 MG/DAY

REACTIONS (4)
  - AMPUTATION [None]
  - COUGH [None]
  - DIABETES MELLITUS INADEQUATE CONTROL [None]
  - DIABETIC VASCULAR DISORDER [None]
